FAERS Safety Report 10228761 (Version 9)
Quarter: 2015Q2

REPORT INFORMATION
  Report Type: Spontaneous
  Country: US (occurrence: US)
  Receive Date: 20140610
  Receipt Date: 20150527
  Transmission Date: 20150821
  Serious: Yes (Hospitalization)
  Sender: FDA-Public Use
  Company Number: US-PFIZER INC-2014145990

PATIENT
  Age: 66 Year
  Sex: Female
  Weight: 57 kg

DRUGS (7)
  1. REVATIO [Suspect]
     Active Substance: SILDENAFIL CITRATE
     Dosage: UNK
  2. FUROSEMIDE. [Concomitant]
     Active Substance: FUROSEMIDE
     Dosage: 40 MG 1 TAB A DAY
  3. OMEPRAZOLE. [Concomitant]
     Active Substance: OMEPRAZOLE
     Dosage: 20 MG 1 CAPSULE
  4. REVATIO [Suspect]
     Active Substance: SILDENAFIL CITRATE
     Indication: CARDIAC DISORDER
     Dosage: 20 MG, 2X/DAY
     Route: 048
     Dates: start: 20120728
  5. ESTROGEN [Concomitant]
     Active Substance: ESTRONE\SUS SCROFA OVARY
     Dosage: ? ONCE A DAY
  6. ACETAZOLAMIDE. [Concomitant]
     Active Substance: ACETAZOLAMIDE
     Dosage: 250 MG 1 TAB 2 DAY
  7. BUSPIRONE [Concomitant]
     Active Substance: BUSPIRONE HYDROCHLORIDE
     Dosage: 7.5 ? 2 DAY

REACTIONS (13)
  - Anxiety [Unknown]
  - Peripheral swelling [Not Recovered/Not Resolved]
  - Malaise [Unknown]
  - Sinusitis [Unknown]
  - Nervousness [Unknown]
  - Asthenia [Not Recovered/Not Resolved]
  - Limb injury [Unknown]
  - Body height decreased [Unknown]
  - Chronic obstructive pulmonary disease [Unknown]
  - Oxygen saturation decreased [Recovering/Resolving]
  - Influenza [Unknown]
  - Feeling cold [Not Recovered/Not Resolved]
  - Condition aggravated [Unknown]

NARRATIVE: CASE EVENT DATE: 2015
